FAERS Safety Report 8237823-7 (Version None)
Quarter: 2012Q1

REPORT INFORMATION
  Report Type: 
  Country: None (occurrence: None)
  Receive Date: 20120309
  Receipt Date: 20101109
  Transmission Date: 20120608
  Serious: Yes (Other)
  Sender: FDA-Public Use
  Company Number: PHHY2010US74047

PATIENT

DRUGS (1)
  1. EXTAVIA [Suspect]
     Dosage: SUBCUTANEOUS
     Route: 058
     Dates: start: 20100828

REACTIONS (1)
  - HEPATIC ENZYME ABNORMAL [None]
